FAERS Safety Report 20538726 (Version 1)
Quarter: 2022Q1

REPORT INFORMATION
  Report Type: Spontaneous
  Country: JP (occurrence: JP)
  Receive Date: 20220302
  Receipt Date: 20220302
  Transmission Date: 20220423
  Serious: Yes (Life-Threatening)
  Sender: FDA-Public Use
  Company Number: JP-PFIZER INC-202200309139

PATIENT
  Age: 93 Year
  Sex: Female
  Weight: 44 kg

DRUGS (8)
  1. DEXMEDETOMIDINE HYDROCHLORIDE [Interacting]
     Active Substance: DEXMEDETOMIDINE HYDROCHLORIDE
     Indication: Dyskinesia
     Dosage: UNK
  2. DEXMEDETOMIDINE HYDROCHLORIDE [Interacting]
     Active Substance: DEXMEDETOMIDINE HYDROCHLORIDE
     Indication: Anaesthesia
  3. FENTANYL [Interacting]
     Active Substance: FENTANYL
     Indication: Analgesic therapy
     Dosage: UNK
     Route: 042
  4. PROPOFOL [Concomitant]
     Active Substance: PROPOFOL
     Indication: Anaesthesia
     Dosage: UNK
  5. ROCURONIUM BROMIDE [Concomitant]
     Active Substance: ROCURONIUM BROMIDE
     Indication: Anaesthesia
     Dosage: UNK
  6. ROCURONIUM BROMIDE [Concomitant]
     Active Substance: ROCURONIUM BROMIDE
     Indication: Maintenance of anaesthesia
  7. DESFLURANE [Concomitant]
     Active Substance: DESFLURANE
     Indication: Maintenance of anaesthesia
     Dosage: UNK
  8. REMIFENTANIL HYDROCHLORIDE [Concomitant]
     Active Substance: REMIFENTANIL HYDROCHLORIDE
     Indication: Maintenance of anaesthesia
     Dosage: UNK

REACTIONS (3)
  - Drug interaction [Recovering/Resolving]
  - Hypercapnia [Recovering/Resolving]
  - Respiratory depression [Recovering/Resolving]
